FAERS Safety Report 4719047-0 (Version None)
Quarter: 2005Q3

REPORT INFORMATION
  Report Type: 
  Country: None (occurrence: None)
  Receive Date: 20050719
  Receipt Date: 20050706
  Transmission Date: 20060218
  Serious: Yes (Hospitalization)
  Sender: FDA-Public Use
  Company Number: 2005-02338

PATIENT
  Age: 44 Year
  Sex: Female

DRUGS (1)
  1. DICLOFENAC POTASSIUM [Suspect]
     Indication: BACK PAIN

REACTIONS (2)
  - EOSINOPHILIA [None]
  - T-CELL LYMPHOMA [None]
